FAERS Safety Report 13266180 (Version 14)
Quarter: 2018Q1

REPORT INFORMATION
  Report Type: Report from Study
  Country: US (occurrence: US)
  Receive Date: 20170223
  Receipt Date: 20180302
  Transmission Date: 20180508
  Serious: Yes (Hospitalization)
  Sender: FDA-Public Use
  Company Number: US-ACTELION-A-US2017-149961

PATIENT
  Age: 53 Year
  Sex: Female
  Weight: 74.83 kg

DRUGS (30)
  1. VELETRI [Suspect]
     Active Substance: EPOPROSTENOL
     Dosage: 10 NG/KG, PER MIN
     Route: 042
  2. ADCIRCA [Concomitant]
     Active Substance: TADALAFIL
  3. SODIUM CHLORIDE. [Concomitant]
     Active Substance: SODIUM CHLORIDE
  4. ALLEGRA [Concomitant]
     Active Substance: FEXOFENADINE HYDROCHLORIDE
  5. VELETRI [Suspect]
     Active Substance: EPOPROSTENOL
     Dosage: 12 NG/KG, PER MIN
     Route: 042
  6. VELETRI [Suspect]
     Active Substance: EPOPROSTENOL
     Dosage: 33 NG/KG, PER MIN
     Route: 042
  7. LEXAPRO [Concomitant]
     Active Substance: ESCITALOPRAM OXALATE
  8. ZOCOR [Concomitant]
     Active Substance: SIMVASTATIN
  9. MAGNEBIND [Concomitant]
  10. VELETRI [Suspect]
     Active Substance: EPOPROSTENOL
     Dosage: 15 NG/KG, PER MIN
     Route: 042
  11. MICRO K [Concomitant]
  12. ZANTAC [Concomitant]
     Active Substance: RANITIDINE HYDROCHLORIDE
  13. OPSUMIT [Suspect]
     Active Substance: MACITENTAN
     Indication: PULMONARY HYPERTENSION
     Dosage: 10 MG, QD
     Route: 048
     Dates: start: 201705
  14. VELETRI [Suspect]
     Active Substance: EPOPROSTENOL
     Dosage: 25 NG/KG, PER MIN
     Route: 042
  15. SILDENAFIL CITRATE. [Concomitant]
     Active Substance: SILDENAFIL CITRATE
     Dosage: UNK
  16. LOPRESSOR [Concomitant]
     Active Substance: METOPROLOL TARTRATE
  17. PROTONIX [Concomitant]
     Active Substance: PANTOPRAZOLE SODIUM
  18. XYZAL [Concomitant]
     Active Substance: LEVOCETIRIZINE DIHYDROCHLORIDE
  19. REVATIO [Concomitant]
     Active Substance: SILDENAFIL CITRATE
  20. NORVASC [Concomitant]
     Active Substance: AMLODIPINE BESYLATE
  21. SYMBICORT [Concomitant]
     Active Substance: BUDESONIDE\FORMOTEROL FUMARATE DIHYDRATE
  22. VELETRI [Suspect]
     Active Substance: EPOPROSTENOL
     Indication: PULMONARY HYPERTENSION
     Dosage: 28 NG/KG, PER MIN
     Route: 042
     Dates: start: 20170906
  23. ASTELIN [Concomitant]
     Active Substance: AZELASTINE HYDROCHLORIDE
  24. ATROVENT [Concomitant]
     Active Substance: IPRATROPIUM BROMIDE
  25. FLONASE [Concomitant]
     Active Substance: FLUTICASONE PROPIONATE
  26. XANAX [Concomitant]
     Active Substance: ALPRAZOLAM
  27. LASIX [Concomitant]
     Active Substance: FUROSEMIDE
  28. MULTIVITAMIN [Concomitant]
     Active Substance: VITAMINS
  29. DIGOXIN. [Concomitant]
     Active Substance: DIGOXIN
  30. BUMEX [Concomitant]
     Active Substance: BUMETANIDE

REACTIONS (31)
  - Oxygen saturation abnormal [Recovered/Resolved]
  - Skin irritation [Unknown]
  - Pain in extremity [Unknown]
  - Headache [Not Recovered/Not Resolved]
  - Catheter site erythema [Unknown]
  - Heart rate increased [Recovered/Resolved]
  - Sinus disorder [Unknown]
  - Pulmonary hypertension [Unknown]
  - Pulmonary arterial pressure abnormal [Recovered/Resolved]
  - Application site erosion [Unknown]
  - Flushing [Not Recovered/Not Resolved]
  - Weight decreased [Unknown]
  - Echocardiogram abnormal [Recovered/Resolved]
  - Eye haemorrhage [Unknown]
  - Diarrhoea [Unknown]
  - Pain [Unknown]
  - Fatigue [Not Recovered/Not Resolved]
  - Catheter site pruritus [Unknown]
  - Constipation [Unknown]
  - Hypoaesthesia [Unknown]
  - pH body fluid abnormal [Unknown]
  - Pain in jaw [Unknown]
  - Decreased appetite [Unknown]
  - Blood magnesium decreased [Unknown]
  - Muscular weakness [Unknown]
  - Myalgia [Unknown]
  - Dyspnoea exertional [Unknown]
  - Nausea [Unknown]
  - Erythema [Unknown]
  - Paraesthesia [Unknown]
  - Rhinalgia [Unknown]

NARRATIVE: CASE EVENT DATE: 2017
